FAERS Safety Report 20035697 (Version 2)
Quarter: 2021Q4

REPORT INFORMATION
  Report Type: Report from Study
  Country: US (occurrence: US)
  Receive Date: 20211104
  Receipt Date: 20211118
  Transmission Date: 20220303
  Serious: Yes (Hospitalization)
  Sender: FDA-Public Use
  Company Number: US-JNJFOC-20211060393

PATIENT
  Age: 50 Year
  Sex: Male
  Weight: 88.6 kg

DRUGS (4)
  1. SELEXIPAG [Suspect]
     Active Substance: SELEXIPAG
     Indication: Pulmonary arterial hypertension
     Dosage: UPTRAVI 1000 MCG ORALLY 2 TIMES DAILY
     Route: 048
  2. AMBRISENTAN [Concomitant]
     Active Substance: AMBRISENTAN
  3. WARFARIN [Concomitant]
     Active Substance: WARFARIN
  4. ADCIRCA [Concomitant]
     Active Substance: TADALAFIL

REACTIONS (5)
  - Renal failure [Unknown]
  - Cardiac failure [Unknown]
  - Pleural effusion [Unknown]
  - Peripheral swelling [Unknown]
  - Pain in extremity [Unknown]

NARRATIVE: CASE EVENT DATE: 20211009
